FAERS Safety Report 14803314 (Version 2)
Quarter: 2018Q3

REPORT INFORMATION
  Report Type: Spontaneous
  Country: US (occurrence: US)
  Receive Date: 20180425
  Receipt Date: 20180704
  Transmission Date: 20181010
  Serious: No
  Sender: FDA-Public Use
  Company Number: US-GLENMARK PHARMACEUTICALS-2018GMK032925

PATIENT

DRUGS (1)
  1. IMIQUIMOD. [Suspect]
     Active Substance: IMIQUIMOD
     Indication: ACTINIC KERATOSIS
     Dosage: ONE APPPLICATION THRICE IN A WEEK BEFORE BED TIME (MON?WED?FRI)
     Route: 065
     Dates: start: 20180112

REACTIONS (8)
  - Lacrimation increased [Recovered/Resolved]
  - Eye discharge [Recovered/Resolved]
  - Eyelash changes [Recovered/Resolved]
  - Erythema [Recovered/Resolved]
  - Condition aggravated [Recovered/Resolved]
  - Accidental exposure to product [Unknown]
  - Eye irritation [Recovered/Resolved]
  - Drug ineffective [Unknown]
